FAERS Safety Report 12312959 (Version 1)
Quarter: 2016Q2

REPORT INFORMATION
  Report Type: Spontaneous
  Country: US (occurrence: None)
  Receive Date: 20160427
  Receipt Date: 20160427
  Transmission Date: 20160815
  Serious: Yes (Other)
  Sender: FDA-Public Use
  Company Number: None

PATIENT
  Age: 63 Year
  Sex: Female
  Weight: 65.95 kg

DRUGS (1)
  1. RISPERIDONE, 1MG [Suspect]
     Active Substance: RISPERIDONE
     Indication: BIPOLAR I DISORDER
     Route: 048
     Dates: start: 20110902, end: 20160311

REACTIONS (2)
  - Blood prolactin increased [None]
  - Galactorrhoea [None]

NARRATIVE: CASE EVENT DATE: 20160311
